FAERS Safety Report 7030623-5 (Version None)
Quarter: 2010Q4

REPORT INFORMATION
  Report Type: 
  Country: None (occurrence: None)
  Receive Date: 20101001
  Receipt Date: 20100916
  Transmission Date: 20110411
  Serious: Yes (Other)
  Sender: FDA-Public Use
  Company Number: 011130

PATIENT

DRUGS (5)
  1. BUSULFEX [Suspect]
     Indication: BONE MARROW CONDITIONING REGIMEN
     Dosage: 0.8 MG/KG, Q6HR, INTRAVENOUS
     Route: 042
  2. MELPHALAN HYDROCHLORIDE [Concomitant]
  3. FLUDARABINE PHOSPHATE [Concomitant]
  4. ANTILYMPHOCUTE IMMUNOGLOBULIN (RABBIT) (ANTILYMPHOCYTE IMMUNOGLOBULIN [Concomitant]
  5. ANTI-THYMOCYTE GLOBULIN NOS [Concomitant]

REACTIONS (4)
  - ACUTE GRAFT VERSUS HOST DISEASE [None]
  - CHRONIC GRAFT VERSUS HOST DISEASE [None]
  - RENAL FAILURE ACUTE [None]
  - RENAL FAILURE CHRONIC [None]
